FAERS Safety Report 7560880-8 (Version None)
Quarter: 2011Q2

REPORT INFORMATION
  Report Type: 
  Country: None (occurrence: None)
  Receive Date: 20110621
  Receipt Date: 20100723
  Transmission Date: 20111010
  Serious: No
  Sender: FDA-Public Use
  Company Number: US-ASTRAZENECA-2010SE34568

PATIENT
  Age: 49 Year
  Sex: Female
  Weight: 63.5 kg

DRUGS (2)
  1. ATACAND [Suspect]
     Route: 048
  2. ATACAND [Suspect]
     Route: 048
     Dates: start: 20061001

REACTIONS (1)
  - BLOOD PRESSURE FLUCTUATION [None]
